FAERS Safety Report 21033067 (Version 1)
Quarter: 2022Q3

REPORT INFORMATION
  Report Type: Spontaneous
  Country: US (occurrence: US)
  Receive Date: 20220701
  Receipt Date: 20220701
  Transmission Date: 20221026
  Serious: No
  Sender: FDA-Public Use
  Company Number: US-UNITED THERAPEUTICS-UNT-2022-014170

PATIENT
  Sex: Female
  Weight: 66.213 kg

DRUGS (3)
  1. TYVASO [Suspect]
     Active Substance: TREPROSTINIL
     Indication: Pulmonary arterial hypertension
     Dosage: UNK
     Dates: start: 20150306
  2. TYVASO [Suspect]
     Active Substance: TREPROSTINIL
     Dosage: 18-84 ?G, QID
  3. WARFARIN SODIUM [Concomitant]
     Active Substance: WARFARIN SODIUM
     Indication: Product used for unknown indication
     Dosage: UNK
     Route: 065

REACTIONS (4)
  - Scratch [Unknown]
  - Localised infection [Unknown]
  - Candida infection [Unknown]
  - Off label use [Unknown]
